FAERS Safety Report 5394663-4 (Version None)
Quarter: 2007Q3

REPORT INFORMATION
  Report Type: 
  Country: None (occurrence: None)
  Receive Date: 20070723
  Receipt Date: 20070711
  Transmission Date: 20080115
  Serious: Yes (Hospitalization, Other)
  Sender: FDA-Public Use
  Company Number: CO-PFIZER INC-2006074041

PATIENT
  Sex: Female

DRUGS (1)
  1. EPAMIN [Suspect]
     Indication: CONVULSION PROPHYLAXIS
     Route: 048
     Dates: start: 20060503, end: 20060603

REACTIONS (4)
  - CONVULSION [None]
  - PNEUMONIA [None]
  - PYREXIA [None]
  - STEVENS-JOHNSON SYNDROME [None]
